FAERS Safety Report 9179184 (Version 13)
Quarter: 2015Q1

REPORT INFORMATION
  Report Type: Spontaneous
  Country: US (occurrence: US)
  Receive Date: 20130321
  Receipt Date: 20150302
  Transmission Date: 20150721
  Serious: Yes (Hospitalization, Other)
  Sender: FDA-Public Use
  Company Number: US-GLAXOSMITHKLINE-A1016587A

PATIENT

DRUGS (31)
  1. VENTOLIN [Suspect]
     Active Substance: ALBUTEROL SULFATE
     Indication: PANIC ATTACK
  2. VERAMYST [Suspect]
     Active Substance: FLUTICASONE FUROATE
     Indication: RHINITIS ALLERGIC
     Dosage: 1 DF, QD
     Route: 045
     Dates: start: 2009
  3. AMBIEN [Suspect]
     Active Substance: ZOLPIDEM TARTRATE
     Indication: SLEEP DISORDER
     Dosage: UNKNOWN DOSING
     Route: 065
  4. OXYGEN. [Concomitant]
     Active Substance: OXYGEN
  5. NEXIUM [Concomitant]
     Active Substance: ESOMEPRAZOLE MAGNESIUM
  6. DETROL [Concomitant]
     Active Substance: TOLTERODINE TARTRATE
  7. ADVAIR DISKUS [Suspect]
     Active Substance: FLUTICASONE PROPIONATE\SALMETEROL XINAFOATE
     Indication: CHRONIC OBSTRUCTIVE PULMONARY DISEASE
     Dosage: 1 PUFF(S), BID
  8. VERAMYST [Suspect]
     Active Substance: FLUTICASONE FUROATE
     Indication: CHRONIC OBSTRUCTIVE PULMONARY DISEASE
  9. XANAX [Suspect]
     Active Substance: ALPRAZOLAM
     Indication: PRODUCT USED FOR UNKNOWN INDICATION
     Dosage: 5 TIMES PER DAY
     Route: 065
  10. LOVASTATIN. [Concomitant]
     Active Substance: LOVASTATIN
  11. NYSTATIN ORAL [Concomitant]
  12. CITALOPRAM [Concomitant]
     Active Substance: CITALOPRAM HYDROBROMIDE
  13. OXYBUTYNIN [Concomitant]
     Active Substance: OXYBUTYNIN
  14. BUPROPION [Concomitant]
     Active Substance: BUPROPION
  15. VERAMYST [Suspect]
     Active Substance: FLUTICASONE FUROATE
     Indication: ASTHMA
  16. ADVAIR DISKUS [Suspect]
     Active Substance: FLUTICASONE PROPIONATE\SALMETEROL XINAFOATE
     Indication: GASTROOESOPHAGEAL REFLUX DISEASE
  17. VERAPAMIL ER [Concomitant]
     Active Substance: VERAPAMIL HYDROCHLORIDE
  18. ALBUTEROL SULFATE NEBULIZER [Concomitant]
  19. ADVAIR DISKUS [Suspect]
     Active Substance: FLUTICASONE PROPIONATE\SALMETEROL XINAFOATE
     Indication: EMPHYSEMA
  20. ADVAIR DISKUS [Suspect]
     Active Substance: FLUTICASONE PROPIONATE\SALMETEROL XINAFOATE
     Indication: ASTHMA
  21. VENTOLIN [Suspect]
     Active Substance: ALBUTEROL SULFATE
     Indication: CHRONIC OBSTRUCTIVE PULMONARY DISEASE
  22. FLONASE [Suspect]
     Active Substance: FLUTICASONE PROPIONATE
     Indication: RHINITIS ALLERGIC
     Dosage: 1 DF, PRN
     Route: 045
     Dates: start: 2004, end: 2013
  23. CETIRIZINE [Concomitant]
     Active Substance: CETIRIZINE HYDROCHLORIDE
  24. VENTOLIN [Suspect]
     Active Substance: ALBUTEROL SULFATE
     Indication: DYSPNOEA
     Dosage: 2 PUFF(S), PRN
     Route: 055
     Dates: start: 2009
  25. VENTOLIN [Suspect]
     Active Substance: ALBUTEROL SULFATE
     Indication: EMPHYSEMA
  26. VENTOLIN [Suspect]
     Active Substance: ALBUTEROL SULFATE
     Indication: ASTHMA
  27. ANORO ELLIPTA [Suspect]
     Active Substance: UMECLIDINIUM BROMIDE\VILANTEROL TRIFENATATE
     Indication: PRODUCT USED FOR UNKNOWN INDICATION
     Dosage: UNK UNK, U
  28. FLOVENT [Suspect]
     Active Substance: FLUTICASONE PROPIONATE
     Indication: PRODUCT USED FOR UNKNOWN INDICATION
  29. ALPRAZOLAM. [Concomitant]
     Active Substance: ALPRAZOLAM
  30. SPIRIVA [Concomitant]
     Active Substance: TIOTROPIUM BROMIDE MONOHYDRATE
  31. MUPIROCIN. [Concomitant]
     Active Substance: MUPIROCIN

REACTIONS (25)
  - Hip arthroplasty [Recovered/Resolved]
  - Accident [Unknown]
  - Hospitalisation [Unknown]
  - Osteoporosis [Unknown]
  - Mental impairment [Unknown]
  - Lung disorder [Recovered/Resolved]
  - Chest discomfort [Recovered/Resolved]
  - Oxygen supplementation [Unknown]
  - Loss of consciousness [Recovered/Resolved]
  - Memory impairment [Unknown]
  - Incorrect dosage administered [Unknown]
  - Burning sensation [Unknown]
  - Mobility decreased [Unknown]
  - Malaise [Unknown]
  - Oxygen saturation decreased [Recovered/Resolved]
  - Drug intolerance [Unknown]
  - Respiratory disorder [Unknown]
  - Drug administration error [Unknown]
  - Pleural effusion [Recovered/Resolved]
  - Nasopharyngitis [Unknown]
  - Fall [Recovered/Resolved]
  - Hip fracture [Recovered/Resolved]
  - Scab [Unknown]
  - Thermal burn [Unknown]
  - Adverse event [Unknown]

NARRATIVE: CASE EVENT DATE: 201310
